FAERS Safety Report 8936231 (Version 1)
Quarter: 2012Q4

REPORT INFORMATION
  Report Type: 
  Country: CA (occurrence: CA)
  Receive Date: 20121130
  Receipt Date: 20121130
  Transmission Date: 20130627
  Serious: Yes (Death, Hospitalization)
  Sender: FDA-Public Use
  Company Number: CA-AMGEN-CANSP2012070814

PATIENT
  Age: 68 Year
  Sex: Female

DRUGS (4)
  1. XGEVA [Suspect]
     Indication: PANCREATIC CARCINOMA METASTATIC
     Dosage: 120 mg, q4wk
     Route: 058
     Dates: start: 20120517, end: 20120712
  2. OXYCODON [Concomitant]
     Dosage: UNK
  3. PRUCALOPRIDE SUCCINATE [Concomitant]
  4. SYNTHROID [Concomitant]
     Dosage: UNK

REACTIONS (1)
  - Pancreatic carcinoma metastatic [Fatal]
